FAERS Safety Report 9501212 (Version 3)
Quarter: 2013Q4

REPORT INFORMATION
  Report Type: Spontaneous
  Country: US (occurrence: None)
  Receive Date: 20130107
  Receipt Date: 20131226
  Transmission Date: 20140711
  Serious: Yes (Other)
  Sender: FDA-Public Use
  Company Number: PHEH2012US021436

PATIENT
  Age: 34 Year
  Sex: Female
  Weight: 60 kg

DRUGS (4)
  1. GILENYA (FINGOLIMOD) CAPSULE, 0.5MG [Suspect]
     Indication: MULTIPLE SCLEROSIS
     Route: 048
     Dates: start: 20120109
  2. PROZAC (FLUOXETINE HYDROCHLORIDE) [Concomitant]
  3. GABAPENTIN (GABAPENTIN) [Concomitant]
  4. BACLOFEN (BACLOFEN) [Concomitant]

REACTIONS (2)
  - Apathy [None]
  - Depression [None]
